FAERS Safety Report 22148956 (Version 1)
Quarter: 2023Q1

REPORT INFORMATION
  Report Type: Spontaneous
  Country: US (occurrence: US)
  Receive Date: 20230328
  Receipt Date: 20230328
  Transmission Date: 20230417
  Serious: Yes (Death, Other)
  Sender: FDA-Public Use
  Company Number: US-MALLINCKRODT-MNK202300599

PATIENT
  Age: 57 Year
  Sex: Male

DRUGS (6)
  1. NITRIC OXIDE [Suspect]
     Active Substance: NITRIC OXIDE
     Indication: Hypoxia
     Dosage: UNKNOWN
     Route: 055
  2. METHYLPREDNISOLONE [Concomitant]
     Active Substance: METHYLPREDNISOLONE
     Indication: Product used for unknown indication
     Dosage: 125MILLIGRAM PERDAY
     Route: 042
  3. METHYLPREDNISOLONE [Concomitant]
     Active Substance: METHYLPREDNISOLONE
  4. METHYLPREDNISOLONE [Concomitant]
     Active Substance: METHYLPREDNISOLONE
     Dosage: 125 MILLIGRAM, EVERY 6 HOURS FOR THREE DAYS
     Route: 042
  5. METHYLPREDNISOLONE [Concomitant]
     Active Substance: METHYLPREDNISOLONE
     Dosage: 60 MILLIGRAM, EVERY 6 HOURS
     Route: 042
  6. ATOVAQUONE [Concomitant]
     Active Substance: ATOVAQUONE
     Indication: Antifungal prophylaxis
     Dosage: UNKNOWN

REACTIONS (6)
  - Death [Fatal]
  - Lung infiltration [Unknown]
  - Disease progression [Unknown]
  - Oxygen saturation decreased [Unknown]
  - Drug ineffective [Unknown]
  - Product use issue [Unknown]
